FAERS Safety Report 5590801-9 (Version None)
Quarter: 2008Q1

REPORT INFORMATION
  Report Type: 
  Country: None (occurrence: None)
  Receive Date: 20080110
  Receipt Date: 20051108
  Transmission Date: 20080703
  Serious: Yes (Death)
  Sender: FDA-Public Use
  Company Number: 20084494

PATIENT
  Age: 61 Year
  Sex: Male

DRUGS (5)
  1. LIORESAL [Suspect]
     Indication: MUSCLE SPASTICITY
     Dosage: MCG, DAILY, INTRATHECAL
     Route: 037
  2. HYDROMORPHONE HCL [Concomitant]
  3. BUPIVACAINE [Concomitant]
  4. KETAMINE HCL [Concomitant]
  5. DROPERIDOL [Concomitant]

REACTIONS (1)
  - DRUG INEFFECTIVE [None]
